FAERS Safety Report 14160919 (Version 1)
Quarter: 2017Q4

REPORT INFORMATION
  Report Type: Report from Study
  Country: BR (occurrence: BR)
  Receive Date: 20171106
  Receipt Date: 20171106
  Transmission Date: 20180321
  Serious: Yes (Hospitalization, Other)
  Sender: FDA-Public Use
  Company Number: BR-SHIRE-BR201723038

PATIENT

DRUGS (1)
  1. ELAPRASE [Suspect]
     Active Substance: IDURSULFASE
     Indication: MUCOPOLYSACCHARIDOSIS II
     Dosage: UNK
     Route: 065

REACTIONS (11)
  - Depressed mood [Not Recovered/Not Resolved]
  - Pharyngitis [Unknown]
  - Myocardial infarction [Unknown]
  - Nervousness [Not Recovered/Not Resolved]
  - Influenza [Unknown]
  - Pyrexia [Unknown]
  - Bone cyst [Not Recovered/Not Resolved]
  - Blood pressure decreased [Unknown]
  - Respiratory arrest [Unknown]
  - Oropharyngeal pain [Unknown]
  - Dysphonia [Unknown]
